FAERS Safety Report 26168118 (Version 1)
Quarter: 2025Q4

REPORT INFORMATION
  Report Type: Spontaneous
  Country: US (occurrence: None)
  Receive Date: 20251217
  Receipt Date: 20251217
  Transmission Date: 20260118
  Serious: Yes (Other)
  Sender: UCB
  Company Number: US-UCBSA-2025079659

PATIENT
  Age: 28 Year

DRUGS (9)
  1. KEPPRA [Suspect]
     Active Substance: LEVETIRACETAM
     Indication: Product used for unknown indication
     Dosage: 5000 MILLIGRAM, TAKE 2 TABLETS BY MOUTH DAILY AND 3 TABLETS AT BEDTIME
     Route: 061
  2. ONFI [Concomitant]
     Active Substance: CLOBAZAM
     Indication: Product used for unknown indication
     Dosage: 10 MILLIGRAM
     Route: 061
  3. ONFI [Concomitant]
     Active Substance: CLOBAZAM
     Dosage: 5 MILLIGRAM, ONCE DAILY (QD)
  4. MYSOLINE [Concomitant]
     Active Substance: PRIMIDONE
     Indication: Product used for unknown indication
     Dosage: UNK, TAKE 3.5 TABLETS (875MG) BY MOUTH AT 9AM, TAKE 2.5 TABLETS (625MG) BY MOUTH AT 1 PM, AND TAKE 3.5 TABLETS  (875MG) BY MOUTH AT 9PM
     Route: 061
  5. EPIDIOLEX [Concomitant]
     Active Substance: CANNABIDIOL
     Indication: Product used for unknown indication
     Dosage: 6.36 MILLIGRAM, 2X/DAY (BID)
     Route: 061
  6. KLONOPIN [Concomitant]
     Active Substance: CLONAZEPAM
     Indication: Product used for unknown indication
     Dosage: 0.55 MILLIGRAM, 0.25 MG IN AM AND 0, 5MG IN PM
  7. VALTOCO [Concomitant]
     Active Substance: DIAZEPAM
     Indication: Product used for unknown indication
     Dosage: 10 MILLIGRAM, AS NEEDED (PRN), MAY REPEAT AFTER 4 HOURS IF SEIZURES ARE RECURRING
  8. FOLIC ACID [Concomitant]
     Active Substance: FOLIC ACID
     Indication: Product used for unknown indication
     Dosage: 1 MILLIGRAM, ONCE DAILY (QD)
     Route: 061
  9. CHOLECALCIFEROL [Concomitant]
     Active Substance: CHOLECALCIFEROL
     Indication: Product used for unknown indication
     Dosage: 50 MICROGRAM, ONCE DAILY (QD)
     Route: 061

REACTIONS (6)
  - Seizure [Unknown]
  - Drop attacks [Unknown]
  - Sleep deficit [Unknown]
  - Anxiety [Unknown]
  - Off label use [Unknown]
  - Overdose [Unknown]
